FAERS Safety Report 7716825-0 (Version None)
Quarter: 2011Q3

REPORT INFORMATION
  Report Type: 
  Country: None (occurrence: None)
  Receive Date: 20110829
  Receipt Date: 20110825
  Transmission Date: 20111222
  Serious: Yes (Life-Threatening)
  Sender: FDA-Public Use
  Company Number: JP-ASTRAZENECA-2011SE32959

PATIENT
  Age: 50 Year
  Sex: Male
  Weight: 77 kg

DRUGS (4)
  1. SYMBICORT [Suspect]
     Indication: ASTHMA
     Dosage: 2 DF, NUMBER OF SEPARATE DOSAGES UNKNOWN
     Route: 055
     Dates: start: 20110501
  2. UNIPHYL LA [Concomitant]
     Indication: ASTHMA
     Route: 048
     Dates: start: 20110325, end: 20110519
  3. ALLEGRA [Concomitant]
     Indication: URTICARIA CHRONIC
     Route: 048
  4. SINGULAIR [Concomitant]
     Indication: ASTHMA
     Route: 048
     Dates: start: 20110325, end: 20110519

REACTIONS (2)
  - CARDIAC FAILURE CONGESTIVE [None]
  - PRINZMETAL ANGINA [None]
